FAERS Safety Report 10191803 (Version 2)
Quarter: 2014Q3

REPORT INFORMATION
  Report Type: Spontaneous
  Country: DE (occurrence: DE)
  Receive Date: 20140523
  Receipt Date: 20140709
  Transmission Date: 20150326
  Serious: Yes (Hospitalization)
  Sender: FDA-Public Use
  Company Number: DE-TEVA-483445GER

PATIENT
  Sex: Male

DRUGS (1)
  1. ALENDRONS?URE-RATIOPHARM 70 MG TABLETTEN [Suspect]
     Active Substance: ALENDRONIC ACID
     Route: 048

REACTIONS (2)
  - Osteomyelitis [Unknown]
  - Osteonecrosis [Unknown]

NARRATIVE: CASE EVENT DATE: 2014
